FAERS Safety Report 9595964 (Version 1)
Quarter: 2013Q4

REPORT INFORMATION
  Report Type: Spontaneous
  Country: IT (occurrence: IT)
  Receive Date: 20131004
  Receipt Date: 20131004
  Transmission Date: 20140711
  Serious: Yes (Other)
  Sender: FDA-Public Use
  Company Number: IT-PFIZER INC-2013284696

PATIENT
  Age: 62 Year
  Sex: Female

DRUGS (2)
  1. AROMASIN [Suspect]
     Indication: BREAST CANCER FEMALE
     Dosage: 25 MG, 1X/DAY
     Route: 048
     Dates: start: 20130810, end: 20130822
  2. AFINITOR [Suspect]
     Indication: BREAST CANCER FEMALE
     Dosage: 10 MG, 1X/DAY
     Route: 048
     Dates: start: 20130810, end: 20130822

REACTIONS (1)
  - Thrombocytopenia [Recovered/Resolved]
